FAERS Safety Report 7769687-X (Version None)
Quarter: 2011Q3

REPORT INFORMATION
  Report Type: 
  Country: None (occurrence: None)
  Receive Date: 20110922
  Receipt Date: 20110524
  Transmission Date: 20111222
  Serious: No
  Sender: FDA-Public Use
  Company Number: US-ASTRAZENECA-2009UW13714

PATIENT
  Age: 39 Year
  Sex: Male
  Weight: 132.9 kg

DRUGS (15)
  1. PROZAC [Concomitant]
  2. OMEGA [Concomitant]
     Dates: start: 20070101
  3. CARBATROL [Concomitant]
     Indication: ANXIETY
     Route: 048
     Dates: start: 20070101
  4. DEPAKOTE [Concomitant]
     Indication: CONVULSION
     Dates: start: 20070101
  5. CARBATROL [Concomitant]
     Indication: MOOD SWINGS
     Route: 048
     Dates: start: 20070101
  6. SEROQUEL [Suspect]
     Indication: DEPRESSION
     Route: 048
     Dates: start: 20040101
  7. MELATONIN [Concomitant]
     Dates: start: 20070101
  8. SEROQUEL [Suspect]
     Route: 048
     Dates: start: 20070401
  9. ZYPREXA [Concomitant]
     Dates: start: 20020101, end: 20040101
  10. ABILIFY [Concomitant]
     Dates: start: 20070101
  11. GEODON [Concomitant]
     Dates: start: 20070101
  12. LORAZEPAM [Concomitant]
     Dates: start: 20070401
  13. LEXAPRO [Concomitant]
     Dates: start: 20070101
  14. SYMBYAX [Concomitant]
     Indication: ANXIETY
     Dosage: 12 MG TO 25 MG 1 QHS
     Dates: start: 20070101
  15. SYMBYAX [Concomitant]
     Indication: MOOD SWINGS
     Dosage: 12 MG TO 25 MG 1 QHS
     Dates: start: 20070101

REACTIONS (3)
  - DIABETES MELLITUS [None]
  - OBESITY [None]
  - OVERWEIGHT [None]
